FAERS Safety Report 7931759 (Version 2)
Quarter: 2013Q2

REPORT INFORMATION
  Report Type: Report from Study
  Country: NL (occurrence: NL)
  Receive Date: 20110505
  Receipt Date: 20130603
  Transmission Date: 20140414
  Serious: Yes (Hospitalization)
  Sender: FDA-Public Use
  Company Number: NL-JNJFOC-20080504221

PATIENT
  Age: 31 Year
  Sex: Female
  Weight: 119 kg

DRUGS (8)
  1. REMICADE [Suspect]
     Indication: CROHN^S DISEASE
     Route: 042
     Dates: start: 20040119
  2. REMICADE [Suspect]
     Indication: CROHN^S DISEASE
     Route: 042
     Dates: start: 20050819
  3. REMICADE [Suspect]
     Indication: CROHN^S DISEASE
     Route: 042
     Dates: start: 20050912
  4. MORPHINE [Concomitant]
     Indication: CROHN^S DISEASE
     Dates: start: 20080229
  5. IMURAN [Concomitant]
     Indication: CROHN^S DISEASE
     Dates: start: 20000320
  6. IBUPROFEN [Concomitant]
     Indication: CROHN^S DISEASE
     Dates: start: 20080229
  7. INSULATARD [Concomitant]
     Indication: DIABETES MELLITUS
     Dates: start: 20050615
  8. NOVORAPID [Concomitant]
     Indication: DIABETES MELLITUS
     Dates: start: 20050615

REACTIONS (1)
  - Abscess [Recovered/Resolved]
